FAERS Safety Report 19224409 (Version 1)
Quarter: 2021Q2

REPORT INFORMATION
  Report Type: Spontaneous
  Country: US (occurrence: US)
  Receive Date: 20210505
  Receipt Date: 20210505
  Transmission Date: 20210717
  Serious: No
  Sender: FDA-Public Use
  Company Number: US-ROCHE-2681501

PATIENT
  Sex: Male

DRUGS (3)
  1. ESBRIET [Suspect]
     Active Substance: PIRFENIDONE
     Dosage: THEN 2 TABLETS 3 TIMES A DAY FOR 1 WEEK
     Route: 065
  2. ESBRIET [Suspect]
     Active Substance: PIRFENIDONE
     Indication: IDIOPATHIC PULMONARY FIBROSIS
     Dosage: 1 TABLET 3 TIMES A DAY FOR 1 WEEK
     Route: 065
     Dates: start: 20200924
  3. ESBRIET [Suspect]
     Active Substance: PIRFENIDONE
     Dosage: THEN 3 TABLETS 3 TIMES A DAY WITH MEALS
     Route: 065

REACTIONS (3)
  - Sinus disorder [Unknown]
  - Dyspnoea exertional [Unknown]
  - Cough [Unknown]
